FAERS Safety Report 13145753 (Version 1)
Quarter: 2017Q1

REPORT INFORMATION
  Report Type: Spontaneous
  Country: BR (occurrence: BR)
  Receive Date: 20170124
  Receipt Date: 20170124
  Transmission Date: 20170428
  Serious: Yes (Death, Hospitalization, Other)
  Sender: FDA-Public Use
  Company Number: BR-009507513-1701BRA010071

PATIENT
  Sex: Female
  Weight: 1.59 kg

DRUGS (1)
  1. NUVARING [Suspect]
     Active Substance: ETHINYL ESTRADIOL\ETONOGESTREL
     Route: 064

REACTIONS (10)
  - Death [Fatal]
  - Premature baby [Not Recovered/Not Resolved]
  - Foetal growth restriction [Recovered/Resolved]
  - Low birth weight baby [Recovered/Resolved]
  - Seizure [Unknown]
  - Asthma [Unknown]
  - Febrile infection [Unknown]
  - Pneumonia [Recovered/Resolved]
  - Foetal exposure during pregnancy [Recovered/Resolved]
  - Metabolic disorder [Unknown]

NARRATIVE: CASE EVENT DATE: 2008
